FAERS Safety Report 5868999-4 (Version None)
Quarter: 2008Q3

REPORT INFORMATION
  Report Type: 
  Country: None (occurrence: None)
  Receive Date: 20080903
  Receipt Date: 20080825
  Transmission Date: 20090109
  Serious: Yes (Hospitalization, Congenital Anomaly, Other)
  Sender: FDA-Public Use
  Company Number: A0607123A

PATIENT
  Sex: Female
  Weight: 2.7 kg

DRUGS (7)
  1. PAXIL [Suspect]
     Indication: DEPRESSION
     Dosage: 30MG PER DAY
     Dates: start: 19991115, end: 20000301
  2. WELLBUTRIN SR [Concomitant]
     Indication: DEPRESSION
     Dosage: 150MG PER DAY
     Dates: start: 19991205, end: 20000301
  3. KLONOPIN [Concomitant]
     Indication: DEPRESSION
     Dosage: .5MG TWICE PER DAY
     Dates: start: 19991115, end: 20000301
  4. TAMBOCOR [Concomitant]
     Indication: SUPRAVENTRICULAR TACHYCARDIA
     Dosage: 150MG TWICE PER DAY
     Route: 048
     Dates: start: 19990501, end: 20000301
  5. CARDIAC MEDICATION [Concomitant]
  6. TYLENOL (CAPLET) [Concomitant]
  7. VITAMIN TAB [Concomitant]

REACTIONS (16)
  - AORTIC STENOSIS [None]
  - ATRIAL SEPTAL DEFECT [None]
  - BUNDLE BRANCH BLOCK RIGHT [None]
  - CARDIAC MURMUR [None]
  - CARDIOMEGALY [None]
  - CONGENITAL ANOMALY [None]
  - DILATATION VENTRICULAR [None]
  - DRUG EXPOSURE DURING PREGNANCY [None]
  - HEART VALVE INCOMPETENCE [None]
  - MITRAL VALVE INCOMPETENCE [None]
  - OXYGEN SATURATION DECREASED [None]
  - PECTUS EXCAVATUM [None]
  - PULMONARY ARTERY STENOSIS [None]
  - RESPIRATORY FAILURE [None]
  - TRUNCUS ARTERIOSUS PERSISTENT [None]
  - VENTRICULAR SEPTAL DEFECT [None]
